FAERS Safety Report 26145716 (Version 1)
Quarter: 2025Q4

REPORT INFORMATION
  Report Type: Spontaneous
  Country: US (occurrence: None)
  Receive Date: 20251210
  Receipt Date: 20251210
  Transmission Date: 20260118
  Serious: Yes (Other)
  Sender: FDA-CTU
  Company Number: None

PATIENT
  Age: 45 Year
  Sex: Female
  Weight: 70.65 kg

DRUGS (1)
  1. CAPLYTA [Suspect]
     Active Substance: LUMATEPERONE
     Indication: Bipolar disorder
     Dates: start: 20251209, end: 20251210

REACTIONS (4)
  - Skin burning sensation [None]
  - Agitation [None]
  - Emotional distress [None]
  - Dyspepsia [None]

NARRATIVE: CASE EVENT DATE: 20251209
